FAERS Safety Report 23788021 (Version 1)
Quarter: 2024Q2

REPORT INFORMATION
  Report Type: Other
  Country: US (occurrence: None)
  Receive Date: 20240426
  Receipt Date: 20240426
  Transmission Date: 20240715
  Serious: Yes (Death, Other)
  Sender: FDA-Public Use
  Company Number: US-ROCHE-3550053

PATIENT
  Sex: Female

DRUGS (22)
  1. ESBRIET [Suspect]
     Active Substance: PIRFENIDONE
     Indication: Pulmonary fibrosis
     Route: 048
  2. ESBRIET [Suspect]
     Active Substance: PIRFENIDONE
     Indication: Idiopathic pulmonary fibrosis
  3. ESBRIET [Suspect]
     Active Substance: PIRFENIDONE
     Indication: Hypersensitivity pneumonitis
  4. MYCOPHENOLATE MOFETIL [Suspect]
     Active Substance: MYCOPHENOLATE MOFETIL
     Indication: Product used for unknown indication
     Route: 048
  5. CLONAZEPAM [Suspect]
     Active Substance: CLONAZEPAM
     Indication: Product used for unknown indication
     Route: 048
  6. AIMOVIG [Concomitant]
     Active Substance: ERENUMAB-AOOE
     Route: 058
  7. ALBUTEROL SULFATE [Concomitant]
     Active Substance: ALBUTEROL SULFATE
     Dosage: 30 DAYS, 11 REFILL
  8. BREO ELLIPTA [Concomitant]
     Active Substance: FLUTICASONE FUROATE\VILANTEROL TRIFENATATE
     Dosage: 1 PUFF DAILY
  9. MINERALS\VITAMINS [Concomitant]
     Active Substance: MINERALS\VITAMINS
  10. DEVICE [Concomitant]
     Active Substance: DEVICE
     Dosage: 11CWP AT BEDTIME
  11. DOXEPIN HCL [Concomitant]
     Active Substance: DOXEPIN HYDROCHLORIDE
     Route: 048
  12. EZETIMIBE [Concomitant]
     Active Substance: EZETIMIBE
     Route: 048
  13. FUROSEMIDE [Concomitant]
     Active Substance: FUROSEMIDE
     Route: 048
  14. HYOSCYAMINE SULFATE [Concomitant]
     Active Substance: HYOSCYAMINE SULFATE
  15. LOSARTAN POTASSIUM [Concomitant]
     Active Substance: LOSARTAN POTASSIUM
     Route: 048
  16. LYRICA [Concomitant]
     Active Substance: PREGABALIN
     Route: 048
  17. OXYGEN [Concomitant]
     Active Substance: OXYGEN
  18. PANTOPRAZOLE SODIUM [Concomitant]
     Active Substance: PANTOPRAZOLE SODIUM
     Route: 048
  19. PLAVIX [Concomitant]
     Active Substance: CLOPIDOGREL BISULFATE
     Route: 048
  20. PROAIR HFA [Concomitant]
     Active Substance: ALBUTEROL SULFATE
  21. TYLENOL WITH CODEINE [Concomitant]
     Active Substance: ACETAMINOPHEN\CODEINE PHOSPHATE
     Route: 048
  22. CHOLECALCIFEROL [Concomitant]
     Active Substance: CHOLECALCIFEROL
     Route: 048

REACTIONS (17)
  - Death [Fatal]
  - Cerebrovascular accident [Unknown]
  - Dyspnoea [Unknown]
  - Gastrooesophageal reflux disease [Unknown]
  - Interstitial lung disease [Unknown]
  - Migraine [Unknown]
  - Myalgia [Unknown]
  - Obstructive sleep apnoea syndrome [Unknown]
  - Obesity [Unknown]
  - Hypoxia [Unknown]
  - Palpitations [Unknown]
  - Scleroderma [Unknown]
  - Urinary tract infection [Unknown]
  - Hypertension [Unknown]
  - Osteoarthritis [Unknown]
  - Myositis [Unknown]
  - Sjogren^s syndrome [Unknown]

NARRATIVE: CASE EVENT DATE: 20240412
